FAERS Safety Report 6976365-3 (Version None)
Quarter: 2010Q3

REPORT INFORMATION
  Report Type: 
  Country: None (occurrence: None)
  Receive Date: 20100910
  Receipt Date: 20100831
  Transmission Date: 20110219
  Serious: Yes (Hospitalization, Other)
  Sender: FDA-Public Use
  Company Number: JP-PFIZER INC-2010109695

PATIENT
  Age: 73 Year
  Sex: Female

DRUGS (4)
  1. LYRICA [Suspect]
     Indication: POST HERPETIC NEURALGIA
     Dosage: 75 MG, 1X/DAY
     Route: 048
     Dates: start: 20100810, end: 20100813
  2. TEGRETOL [Concomitant]
     Dosage: UNK
     Route: 048
     Dates: start: 20100713, end: 20100813
  3. TAKEPRON [Concomitant]
     Dosage: UNK
     Route: 048
     Dates: start: 20100806
  4. MUCOSTA [Concomitant]
     Dosage: UNK
     Route: 048
     Dates: start: 20100806

REACTIONS (2)
  - ERYTHEMA MULTIFORME [None]
  - LYMPHOCYTE STIMULATION TEST POSITIVE [None]
